FAERS Safety Report 17565653 (Version 1)
Quarter: 2020Q1

REPORT INFORMATION
  Report Type: Spontaneous
  Country: US (occurrence: US)
  Receive Date: 20200313
  Receipt Date: 20200313
  Transmission Date: 20200409
  Serious: Yes (Hospitalization)
  Sender: FDA-Public Use
  Company Number: None

PATIENT
  Age: 24 Month
  Sex: Male
  Weight: 10.1 kg

DRUGS (5)
  1. CISPLATIN. [Suspect]
     Active Substance: CISPLATIN
     Dates: end: 20200226
  2. VINCRISTINE SULFATE. [Suspect]
     Active Substance: VINCRISTINE SULFATE
     Dates: end: 20200304
  3. DOXORUBICIN HYDROCHLORIDE. [Suspect]
     Active Substance: DOXORUBICIN HYDROCHLORIDE
     Dates: end: 20200227
  4. ZINECARD [Suspect]
     Active Substance: DEXRAZOXANE HYDROCHLORIDE
     Dates: end: 20200227
  5. 5-FLUOROURACIL (5-FU) [Suspect]
     Active Substance: FLUOROURACIL
     Dates: end: 20200226

REACTIONS (18)
  - Haemoglobin decreased [None]
  - Gastrointestinal sounds abnormal [None]
  - Acute respiratory failure [None]
  - Abdominal pain [None]
  - Abdominal distension [None]
  - Diarrhoea [None]
  - Fraction of inspired oxygen [None]
  - Neutrophil count decreased [None]
  - Enteritis [None]
  - Norovirus test positive [None]
  - Atelectasis [None]
  - Fluid overload [None]
  - Pyrexia [None]
  - C-reactive protein increased [None]
  - Hypoxia [None]
  - Dehydration [None]
  - Vomiting [None]
  - Respiratory disorder [None]

NARRATIVE: CASE EVENT DATE: 20200307
